FAERS Safety Report 14826522 (Version 3)
Quarter: 2018Q3

REPORT INFORMATION
  Report Type: Report from Study
  Country: GB (occurrence: GB)
  Receive Date: 20180430
  Receipt Date: 20180807
  Transmission Date: 20181010
  Serious: Yes (Other)
  Sender: FDA-Public Use
  Company Number: PHHY2018GB072452

PATIENT
  Sex: Male

DRUGS (1)
  1. COSENTYX [Suspect]
     Active Substance: SECUKINUMAB
     Indication: PSORIATIC ARTHROPATHY
     Dosage: 300 MG, QW (WEEKLY FOR WEEKS 0, 1, 2, 3; MONTHLY THEREAFTER)
     Route: 058
     Dates: start: 20180328

REACTIONS (2)
  - Skin ulcer [Not Recovered/Not Resolved]
  - Infection [Not Recovered/Not Resolved]
